FAERS Safety Report 23301038 (Version 1)
Quarter: 2023Q4

REPORT INFORMATION
  Report Type: Spontaneous
  Country: CN (occurrence: CN)
  Receive Date: 20231215
  Receipt Date: 20231215
  Transmission Date: 20240109
  Serious: Yes (Death, Life-Threatening, Hospitalization, Other)
  Sender: FDA-Public Use
  Company Number: CN-PFIZER INC-PV202300199420

PATIENT
  Age: 59 Year
  Sex: Male

DRUGS (2)
  1. CEFOPERAZONE SODIUM\SULBACTAM SODIUM [Suspect]
     Active Substance: CEFOPERAZONE SODIUM\SULBACTAM SODIUM
     Indication: Klebsiella infection
     Dosage: 4 G, 2X/DAY, EVERY 12 HOURS
  2. MEROPENEM [Suspect]
     Active Substance: MEROPENEM
     Indication: Klebsiella infection
     Dosage: 1 G, 3X/DAY, EVERY 8 HOURS ON THE SECOND DAY AFTER SURGERY

REACTIONS (1)
  - Pathogen resistance [Fatal]
